FAERS Safety Report 9772662 (Version 1)
Quarter: 2013Q4

REPORT INFORMATION
  Report Type: Spontaneous
  Country: US (occurrence: None)
  Receive Date: 20131218
  Receipt Date: 20131218
  Transmission Date: 20140711
  Serious: Yes (Hospitalization)
  Sender: FDA-Public Use
  Company Number: None

PATIENT
  Age: 70 Year
  Sex: Male
  Weight: 62 kg

DRUGS (4)
  1. CARBOPLATIN [Suspect]
     Dosage: 602 MG IV OVER 30 MINS
  2. ERBITUX (CETUXIMAB) [Suspect]
     Dosage: 460 MG IV ONE HOUR
  3. PACLITAXEL (TAXOL) [Suspect]
     Dosage: 370 MG IV OVER THREE HOURS
  4. LOVENOX [Concomitant]

REACTIONS (8)
  - Pancytopenia [None]
  - Cardiac tamponade [None]
  - General physical health deterioration [None]
  - Hypotension [None]
  - Electrolyte imbalance [None]
  - Pseudomonal sepsis [None]
  - Atrial fibrillation [None]
  - Pain [None]
